FAERS Safety Report 8459679-X (Version None)
Quarter: 2012Q2

REPORT INFORMATION
  Report Type: 
  Country: None (occurrence: None)
  Receive Date: 20120622
  Receipt Date: 20120612
  Transmission Date: 20120825
  Serious: Yes (Hospitalization)
  Sender: FDA-Public Use
  Company Number: FR-BRISTOL-MYERS SQUIBB COMPANY-16686966

PATIENT
  Age: 85 Year
  Sex: Female

DRUGS (13)
  1. IBUPROFEN [Concomitant]
     Dates: end: 20111110
  2. METFORMIN HCL [Concomitant]
  3. IRBESARTAN AND HYDROCHLOROTHIAZIDE [Suspect]
     Indication: HYPERTENSION
     Route: 048
     Dates: end: 20111123
  4. CHLOROQUINE PHOSPHATE [Suspect]
     Route: 048
     Dates: end: 20111123
  5. MICONAZOLE [Concomitant]
     Dates: start: 20110901, end: 20111105
  6. AMYCOR [Concomitant]
  7. COLCHICINE [Suspect]
     Indication: GOUT
     Route: 048
     Dates: start: 20111113, end: 20111117
  8. TIMOLOL MALEATE [Concomitant]
  9. TRAMADOL HCL [Suspect]
     Indication: OSTEOARTHRITIS
     Route: 048
     Dates: start: 20111001, end: 20111123
  10. LANTUS [Concomitant]
  11. ULORIC [Suspect]
     Indication: GOUT
     Route: 048
     Dates: start: 20111113, end: 20111117
  12. AMLODIPINE [Concomitant]
  13. ACETAMINOPHEN [Concomitant]

REACTIONS (1)
  - ACUTE GENERALISED EXANTHEMATOUS PUSTULOSIS [None]
